FAERS Safety Report 8807360 (Version 1)
Quarter: 2012Q4

REPORT INFORMATION
  Report Type: 
  Country: DE (occurrence: DE)
  Receive Date: 20120925
  Receipt Date: 20120925
  Transmission Date: 20130627
  Serious: Yes (Hospitalization, Other)
  Sender: FDA-Public Use
  Company Number: DE-ABBOTT-12P-062-0966146-00

PATIENT
  Sex: Male

DRUGS (1)
  1. DUODOPA [Suspect]
     Indication: PARKINSON^S DISEASE
     Route: 050
     Dates: start: 20110117

REACTIONS (3)
  - Procedural site reaction [Not Recovered/Not Resolved]
  - Gastrointestinal stoma complication [Unknown]
  - Gastrointestinal stoma complication [Unknown]
